FAERS Safety Report 5741941-2 (Version None)
Quarter: 2008Q2

REPORT INFORMATION
  Report Type: 
  Country: None (occurrence: None)
  Receive Date: 20080519
  Receipt Date: 20070626
  Transmission Date: 20081010
  Serious: No
  Sender: FDA-Public Use
  Company Number: US-KINGPHARMUSA00001-K200700810

PATIENT

DRUGS (5)
  1. TAPAZOLE [Suspect]
     Dosage: 5 MG, TID
     Route: 048
     Dates: start: 20070510
  2. TAPAZOLE [Suspect]
     Dosage: 10 MG, TID
     Route: 048
  3. COREG [Suspect]
     Dosage: 6.25 MG, UNK
     Route: 048
  4. LASIX [Concomitant]
     Route: 048
  5. KLONOPIN [Concomitant]
     Route: 048

REACTIONS (2)
  - DRUG INTERACTION [None]
  - MENTAL STATUS CHANGES [None]
